FAERS Safety Report 17836468 (Version 1)
Quarter: 2020Q2

REPORT INFORMATION
  Report Type: Spontaneous
  Country: CN (occurrence: CN)
  Receive Date: 20200528
  Receipt Date: 20200528
  Transmission Date: 20200714
  Serious: Yes (Other)
  Sender: FDA-Public Use
  Company Number: CN-VALIDUS PHARMACEUTICALS LLC-CN-2020VAL000426

PATIENT

DRUGS (2)
  1. CALCITRIOL. [Suspect]
     Active Substance: CALCITRIOL
     Indication: OSTEOPOROSIS
     Dosage: 0.25 ?G, UNK
     Route: 065
  2. CALCIUM CARBONATE AND VITAMIN D [Suspect]
     Active Substance: CALCIUM CARBONATE\VITAMIN D
     Indication: OSTEOPOROSIS
     Dosage: 600 MG, UNK
     Route: 065

REACTIONS (1)
  - Femoral neck fracture [Unknown]
